FAERS Safety Report 20189635 (Version 4)
Quarter: 2022Q1

REPORT INFORMATION
  Report Type: Spontaneous
  Country: JP (occurrence: JP)
  Receive Date: 20211215
  Receipt Date: 20220303
  Transmission Date: 20220423
  Serious: Yes (Hospitalization)
  Sender: FDA-Public Use
  Company Number: JP-002147023-NVSJ2021JP020152

PATIENT

DRUGS (1)
  1. RUXOLITINIB [Suspect]
     Active Substance: RUXOLITINIB
     Indication: Product used for unknown indication
     Dosage: 50 MG
     Route: 048

REACTIONS (3)
  - Oesophageal carcinoma [Unknown]
  - Second primary malignancy [Unknown]
  - Thrombocytosis [Unknown]
